FAERS Safety Report 9550105 (Version 2)
Quarter: 2015Q2

REPORT INFORMATION
  Report Type: Report from Study
  Country: US (occurrence: US)
  Receive Date: 20130924
  Receipt Date: 20150424
  Transmission Date: 20150821
  Serious: Yes (Other)
  Sender: FDA-Public Use
  Company Number: US-ROCHE-1275787

PATIENT

DRUGS (8)
  1. TRIAMCINOLONE ACETONIDE. [Suspect]
     Active Substance: TRIAMCINOLONE ACETONIDE
     Indication: AGE-RELATED MACULAR DEGENERATION
     Dosage: 0.1 ML
     Route: 050
  2. PEGAPTANIB SODIUM [Suspect]
     Active Substance: PEGAPTANIB SODIUM
     Indication: AGE-RELATED MACULAR DEGENERATION
     Dosage: 0.09 ML
     Route: 050
  3. AFLIBERCEPT [Suspect]
     Active Substance: AFLIBERCEPT
     Indication: AGE-RELATED MACULAR DEGENERATION
     Dosage: 0.05ML
     Route: 050
  4. BEVACIZUMAB [Suspect]
     Active Substance: BEVACIZUMAB
     Indication: AGE-RELATED MACULAR DEGENERATION
     Dosage: 0.05 ML
     Route: 050
  5. DEXAMETHASONE. [Suspect]
     Active Substance: DEXAMETHASONE
     Indication: AGE-RELATED MACULAR DEGENERATION
     Route: 065
  6. RANIBIZUMAB [Suspect]
     Active Substance: RANIBIZUMAB
     Indication: AGE-RELATED MACULAR DEGENERATION
     Dosage: 0.05 ML
     Route: 050
  7. GANCICLOVIR. [Suspect]
     Active Substance: GANCICLOVIR
     Indication: AGE-RELATED MACULAR DEGENERATION
     Dosage: 0.1ML
     Route: 050
  8. DEXAMETHASONE SODIUM PHOSPHATE. [Suspect]
     Active Substance: DEXAMETHASONE SODIUM PHOSPHATE
     Indication: AGE-RELATED MACULAR DEGENERATION
     Dosage: 0.1 ML
     Route: 050

REACTIONS (3)
  - Glaucoma [Unknown]
  - Retinal detachment [Unknown]
  - Uveitis [Unknown]
